FAERS Safety Report 22373558 (Version 1)
Quarter: 2023Q2

REPORT INFORMATION
  Report Type: Spontaneous
  Country: IT (occurrence: IT)
  Receive Date: 20230526
  Receipt Date: 20230526
  Transmission Date: 20230722
  Serious: Yes (Other)
  Sender: FDA-Public Use
  Company Number: None

PATIENT
  Age: 87 Year
  Sex: Female
  Weight: 65 kg

DRUGS (1)
  1. PAROXETINE [Suspect]
     Active Substance: PAROXETINE
     Indication: Mixed anxiety and depressive disorder
     Route: 065
     Dates: start: 20211206, end: 20211209

REACTIONS (5)
  - Hallucination [Recovered/Resolved]
  - Depressed mood [Recovered/Resolved]
  - Agitation [Recovered/Resolved]
  - Disorientation [Recovered/Resolved]
  - Nightmare [Recovered/Resolved]

NARRATIVE: CASE EVENT DATE: 20211206
